FAERS Safety Report 6276031-6 (Version None)
Quarter: 2009Q3

REPORT INFORMATION
  Report Type: 
  Country: None (occurrence: None)
  Receive Date: 20090722
  Receipt Date: 20070521
  Transmission Date: 20100115
  Serious: Yes (Hospitalization, Other)
  Sender: FDA-Public Use
  Company Number: US-ASTRAZENECA-2006UW23574

PATIENT
  Age: 64 Year
  Sex: Female
  Weight: 83.5 kg

DRUGS (19)
  1. SEROQUEL [Suspect]
     Indication: MENTAL DISORDER
     Dosage: 10 MG TO 200 MG
     Route: 048
     Dates: start: 20010912
  2. REMERON [Concomitant]
     Dosage: 30 MG TO 45 MG
     Dates: start: 20000203
  3. KLONOPIN [Concomitant]
     Dosage: 2 MG TO 3 MG
     Dates: start: 20010912
  4. CELEXA [Concomitant]
     Dosage: 20 MG TO 40 MG
     Dates: start: 20010912
  5. AMARYL [Concomitant]
     Indication: DIABETES MELLITUS
     Dates: start: 20010912
  6. DEPAKOTE [Concomitant]
     Indication: PAIN
  7. NEURONTIN [Concomitant]
     Indication: PAIN
     Dates: start: 20000620
  8. CLONIDINE [Concomitant]
     Dosage: 0.4 MG  TO 0.6 MG
     Dates: start: 20000203
  9. TIAZAC [Concomitant]
     Dates: start: 20000203
  10. LASIX [Concomitant]
     Dates: start: 20000203
  11. PREMARIN [Concomitant]
     Dates: start: 19930217
  12. COZAAR [Concomitant]
     Dates: start: 20000203
  13. LORAZEPAM [Concomitant]
     Dates: start: 20000203
  14. DYAZIDE [Concomitant]
     Dosage: 37.5/ 25 MG DAILY
     Dates: start: 19930217
  15. METHYLDOPA [Concomitant]
     Dates: start: 20020603
  16. GEMFIBROZIL [Concomitant]
     Dates: start: 20020603
  17. K-DUR [Concomitant]
     Dates: start: 20020603
  18. WELLBUTRIN [Concomitant]
     Dates: start: 20030504
  19. CAPTOPRIL [Concomitant]
     Dosage: 100 MG TO 200 MG
     Dates: start: 20030504

REACTIONS (19)
  - ATRIAL FIBRILLATION [None]
  - BACK PAIN [None]
  - BLOOD PRESSURE [None]
  - BLOOD PRESSURE ABNORMAL [None]
  - BRADYCARDIA [None]
  - DIABETES MELLITUS [None]
  - DIABETIC COMPLICATION [None]
  - FACET JOINT SYNDROME [None]
  - HAEMATURIA [None]
  - HYPERGLYCAEMIA [None]
  - HYPONATRAEMIA [None]
  - INTERVERTEBRAL DISC DISPLACEMENT [None]
  - INTERVERTEBRAL DISC PROTRUSION [None]
  - LUMBAR SPINAL STENOSIS [None]
  - RENAL DISORDER [None]
  - RENAL FAILURE [None]
  - RENAL FAILURE ACUTE [None]
  - RENAL FAILURE CHRONIC [None]
  - SYNCOPE [None]
